FAERS Safety Report 21058660 (Version 1)
Quarter: 2022Q3

REPORT INFORMATION
  Report Type: Spontaneous
  Country: US (occurrence: US)
  Receive Date: 20220708
  Receipt Date: 20220708
  Transmission Date: 20221027
  Serious: No
  Sender: FDA-Public Use
  Company Number: US-PFIZER INC-202200934503

PATIENT
  Age: 63 Year
  Sex: Female

DRUGS (1)
  1. PAXLOVID [Suspect]
     Active Substance: NIRMATRELVIR\RITONAVIR
     Indication: COVID-19 treatment
     Dosage: [PF-07321332 300 MG]/[RITONAVIR 100 MG]; 2X/DAY (TAKES IT AT 7 AM AND 10 PM AT NIGHT, EVERY 12 HOURS
     Dates: start: 2022

REACTIONS (6)
  - Dry mouth [Unknown]
  - Lip dry [Unknown]
  - Dry throat [Unknown]
  - Nasal dryness [Unknown]
  - Insomnia [Unknown]
  - Dyspnoea [Unknown]

NARRATIVE: CASE EVENT DATE: 20220101
